FAERS Safety Report 5602546-7 (Version None)
Quarter: 2008Q1

REPORT INFORMATION
  Report Type: 
  Country: None (occurrence: None)
  Receive Date: 20080125
  Receipt Date: 20080124
  Transmission Date: 20080703
  Serious: Yes (Hospitalization)
  Sender: FDA-Public Use
  Company Number: B0505195A

PATIENT
  Age: 80 Year
  Sex: Female

DRUGS (3)
  1. CARVEDILOL [Suspect]
     Dosage: 12.5MG PER DAY
     Route: 048
  2. BIPRETERAX [Concomitant]
     Route: 065
  3. FLODIL LP [Concomitant]

REACTIONS (6)
  - ATRIOVENTRICULAR BLOCK COMPLETE [None]
  - FALL [None]
  - FIBULA FRACTURE [None]
  - HYPERHIDROSIS [None]
  - MALAISE [None]
  - ORTHOSTATIC HYPOTENSION [None]
